FAERS Safety Report 10910605 (Version 1)
Quarter: 2015Q1

REPORT INFORMATION
  Report Type: Report from Study
  Country: VE (occurrence: VE)
  Receive Date: 20150312
  Receipt Date: 20150312
  Transmission Date: 20150721
  Serious: Yes (Hospitalization, Other)
  Sender: FDA-Public Use
  Company Number: PHHY2015VE029361

PATIENT
  Sex: Male

DRUGS (3)
  1. DIOVAN [Suspect]
     Active Substance: VALSARTAN
     Indication: HYPERTENSION
     Dosage: 320 MG, QD
     Route: 048
  2. ISMO [Concomitant]
     Active Substance: ISOSORBIDE MONONITRATE
     Indication: CARDIOVASCULAR DISORDER
     Dosage: 40 MG, QD
     Route: 065
  3. LUCENTIS [Suspect]
     Active Substance: RANIBIZUMAB
     Indication: RETINAL DISORDER
     Dosage: UNK OT, QMO
     Route: 031
     Dates: end: 2014

REACTIONS (5)
  - Malaise [Recovering/Resolving]
  - Product use issue [Unknown]
  - Diabetes mellitus [Recovering/Resolving]
  - Visual acuity reduced [Recovering/Resolving]
  - Hearing impaired [Recovering/Resolving]
